FAERS Safety Report 10073189 (Version 1)
Quarter: 2014Q2

REPORT INFORMATION
  Report Type: Spontaneous
  Country: JP (occurrence: JP)
  Receive Date: 20140411
  Receipt Date: 20140411
  Transmission Date: 20141212
  Serious: Yes (Hospitalization)
  Sender: FDA-Public Use
  Company Number: JP-TEVA-473152ISR

PATIENT
  Age: 58 Year
  Sex: Female
  Weight: 60 kg

DRUGS (1)
  1. GEMCITABINE [Suspect]
     Indication: GALLBLADDER CANCER
     Route: 065

REACTIONS (3)
  - Haemolytic uraemic syndrome [Recovered/Resolved]
  - Raynaud^s phenomenon [Recovered/Resolved]
  - Hypertensive emergency [Recovered/Resolved]
